FAERS Safety Report 4522674-7 (Version None)
Quarter: 2004Q4

REPORT INFORMATION
  Report Type: 
  Country: None (occurrence: None)
  Receive Date: 20041209
  Receipt Date: 20041129
  Transmission Date: 20050328
  Serious: Yes (Hospitalization)
  Sender: FDA-Public Use
  Company Number: GB-ABBOTT-04P-167-0281773-00

PATIENT
  Sex: Male

DRUGS (8)
  1. HUMIRA [Suspect]
     Indication: RHEUMATOID ARTHRITIS
     Route: 058
     Dates: start: 20040804, end: 20040921
  2. HUMIRA [Suspect]
     Route: 058
     Dates: start: 20041014
  3. CELECOXIB [Concomitant]
     Indication: DRUG USE FOR UNKNOWN INDICATION
  4. DIPROBASE CREAM [Concomitant]
     Indication: DRUG USE FOR UNKNOWN INDICATION
  5. PARACETAMOL [Concomitant]
     Indication: DRUG USE FOR UNKNOWN INDICATION
  6. NARAD B.P [Concomitant]
     Indication: DRUG USE FOR UNKNOWN INDICATION
  7. FIBOGEL [Concomitant]
     Indication: DRUG USE FOR UNKNOWN INDICATION
  8. TRAMADOL HCL [Concomitant]
     Indication: DRUG USE FOR UNKNOWN INDICATION

REACTIONS (13)
  - ABDOMINAL DISCOMFORT [None]
  - ANOREXIA [None]
  - ARTHRALGIA [None]
  - BETA HAEMOLYTIC STREPTOCOCCAL INFECTION [None]
  - C-REACTIVE PROTEIN INCREASED [None]
  - HYPERSENSITIVITY [None]
  - NIGHT SWEATS [None]
  - PAIN [None]
  - RASH PRURITIC [None]
  - RED BLOOD CELL SEDIMENTATION RATE INCREASED [None]
  - RHEUMATOID ARTHRITIS [None]
  - SYNOVITIS [None]
  - VASCULITIC RASH [None]
